FAERS Safety Report 6338737-X (Version None)
Quarter: 2009Q3

REPORT INFORMATION
  Report Type: 
  Country: None (occurrence: None)
  Receive Date: 20090903
  Receipt Date: 20090728
  Transmission Date: 20100115
  Serious: No
  Sender: FDA-Public Use
  Company Number: A0795905A

PATIENT
  Age: 19 Year
  Sex: Female

DRUGS (3)
  1. RELENZA [Suspect]
     Indication: DRUG USE FOR UNKNOWN INDICATION
     Dosage: 2PUFF TWICE PER DAY
     Route: 055
     Dates: start: 20090703
  2. PROMETHAZINE [Concomitant]
  3. GLYCOPYRROLATE [Concomitant]

REACTIONS (3)
  - GLOSSODYNIA [None]
  - SWELLING [None]
  - TONGUE BLISTERING [None]
